FAERS Safety Report 6399340-9 (Version None)
Quarter: 2009Q4

REPORT INFORMATION
  Report Type: 
  Country: None (occurrence: None)
  Receive Date: 20091014
  Receipt Date: 20091007
  Transmission Date: 20100525
  Serious: Yes (Death, Hospitalization, Other)
  Sender: FDA-Public Use
  Company Number: DE-CELGENEUS-062-21880-09100653

PATIENT
  Age: 58 Year
  Sex: Male

DRUGS (6)
  1. REVLIMID [Suspect]
     Indication: PLASMABLASTIC LYMPHOMA
     Route: 048
     Dates: start: 20081101
  2. REVLIMID [Suspect]
     Indication: MULTIPLE MYELOMA
  3. MELPHALAN [Concomitant]
     Indication: PLASMABLASTIC LYMPHOMA
     Route: 065
     Dates: start: 20081101
  4. MELPHALAN [Concomitant]
     Indication: MULTIPLE MYELOMA
  5. PREDNISONE [Concomitant]
     Indication: PLASMABLASTIC LYMPHOMA
     Route: 065
     Dates: start: 20081101
  6. PREDNISONE [Concomitant]
     Indication: MULTIPLE MYELOMA

REACTIONS (6)
  - CONFUSIONAL STATE [None]
  - HEADACHE [None]
  - PANCYTOPENIA [None]
  - PNEUMONIA ASPIRATION [None]
  - SUBDURAL HAEMATOMA [None]
  - SYNCOPE [None]
